FAERS Safety Report 10992149 (Version 3)
Quarter: 2015Q3

REPORT INFORMATION
  Report Type: Spontaneous
  Country: US (occurrence: US)
  Receive Date: 20150406
  Receipt Date: 20150717
  Transmission Date: 20151125
  Serious: No
  Sender: FDA-Public Use
  Company Number: US-GILEAD-2015-0144938

PATIENT
  Age: 38 Year
  Sex: Male

DRUGS (1)
  1. SOVALDI [Suspect]
     Active Substance: SOFOSBUVIR
     Indication: HEPATITIS C
     Dosage: 400 MG, QD
     Route: 048
     Dates: start: 20150314

REACTIONS (7)
  - Anxiety [Unknown]
  - Depressed mood [Unknown]
  - Fatigue [Unknown]
  - Anaemia [Unknown]
  - Depression [Unknown]
  - Agitation [Unknown]
  - Insomnia [Unknown]
